FAERS Safety Report 23080729 (Version 1)
Quarter: 2023Q4

REPORT INFORMATION
  Report Type: Spontaneous
  Country: JP (occurrence: JP)
  Receive Date: 20231018
  Receipt Date: 20231018
  Transmission Date: 20240110
  Serious: Yes (Hospitalization)
  Sender: FDA-Public Use
  Company Number: JP-TAKEDA-2023TUS097533

PATIENT
  Age: 58 Year
  Sex: Male

DRUGS (1)
  1. FOSRENOL [Suspect]
     Active Substance: LANTHANUM CARBONATE
     Indication: Hyperphosphataemia
     Dosage: UNK
     Route: 048
     Dates: start: 202308

REACTIONS (1)
  - Diabetic microangiopathy [Unknown]

NARRATIVE: CASE EVENT DATE: 20230801
